FAERS Safety Report 4879009-X (Version None)
Quarter: 2006Q1

REPORT INFORMATION
  Report Type: 
  Country: None (occurrence: None)
  Receive Date: 20060110
  Receipt Date: 20060110
  Transmission Date: 20060701
  Serious: Yes (Death, Hospitalization)
  Sender: FDA-Public Use
  Company Number: None

PATIENT
  Sex: Female
  Weight: 88.72 kg

DRUGS (2)
  1. DOCETAXEL [Suspect]
     Indication: NEOPLASM
     Dosage: SEE IMAGE
     Route: 042
     Dates: start: 20051216, end: 20051216
  2. CARBOPLATIN [Suspect]
     Dosage: SEE IMAGE
     Dates: start: 20051216, end: 20051216

REACTIONS (19)
  - ANURIA [None]
  - BRADYCARDIA [None]
  - CARDIAC ARREST [None]
  - DEHYDRATION [None]
  - DIARRHOEA [None]
  - FISTULA [None]
  - FLUID OVERLOAD [None]
  - HEART RATE DECREASED [None]
  - HYPOTENSION [None]
  - MYOCARDIAL ISCHAEMIA [None]
  - NAUSEA [None]
  - RESPIRATORY ARREST [None]
  - RHONCHI [None]
  - SINUS TACHYCARDIA [None]
  - TACHYCARDIA [None]
  - TACHYPNOEA [None]
  - VENA CAVA THROMBOSIS [None]
  - VENTRICULAR DYSFUNCTION [None]
  - VOMITING [None]
